FAERS Safety Report 24121029 (Version 1)
Quarter: 2024Q3

REPORT INFORMATION
  Report Type: Spontaneous
  Country: US (occurrence: None)
  Receive Date: 20240718
  Receipt Date: 20240718
  Transmission Date: 20241017
  Serious: No
  Sender: Public
  Company Number: None

PATIENT
  Age: 67 Year
  Sex: Male
  Weight: 74.25 kg

DRUGS (3)
  1. ROSUVASTATIN [Suspect]
     Active Substance: ROSUVASTATIN\ROSUVASTATIN CALCIUM
     Indication: Blood cholesterol increased
     Dosage: FREQUENCY : AT BEDTIME;?
     Dates: start: 20240627, end: 20240712
  2. BYSTOLIC [Concomitant]
     Active Substance: NEBIVOLOL HYDROCHLORIDE
  3. one a day vitamins over 50 for men [Concomitant]

REACTIONS (5)
  - Product substitution issue [None]
  - Paraesthesia [None]
  - Therapy interrupted [None]
  - Cardiovascular disorder [None]
  - Therapy cessation [None]

NARRATIVE: CASE EVENT DATE: 20240627
